FAERS Safety Report 8078131-7 (Version None)
Quarter: 2012Q1

REPORT INFORMATION
  Report Type: 
  Country: None (occurrence: None)
  Receive Date: 20120127
  Receipt Date: 20110302
  Transmission Date: 20120608
  Serious: No
  Sender: FDA-Public Use
  Company Number: US-ABBOTT-10P-163-0688364-00

PATIENT
  Age: 70 Year
  Sex: Female

DRUGS (5)
  1. TRIAMTERENE [Concomitant]
     Indication: BLOOD PRESSURE
     Route: 048
  2. VITAMIN TAB [Concomitant]
     Indication: PRODUCT USED FOR UNKNOWN INDICATION
  3. TRAVASTATIN [Concomitant]
     Indication: BLOOD CHOLESTEROL
  4. HUMIRA [Suspect]
     Indication: PSORIASIS
     Dates: start: 20101122, end: 20101122
  5. HUMIRA [Suspect]
     Dates: start: 20101129

REACTIONS (8)
  - HAEMORRHAGE [None]
  - CONTUSION [None]
  - HEAD INJURY [None]
  - BALANCE DISORDER [None]
  - FALL [None]
  - JOINT INJURY [None]
  - MYALGIA [None]
  - EXCORIATION [None]
